FAERS Safety Report 5059159-8 (Version None)
Quarter: 2006Q3

REPORT INFORMATION
  Report Type: 
  Country: None (occurrence: None)
  Receive Date: 20060718
  Receipt Date: 20060705
  Transmission Date: 20061208
  Serious: Yes (Death, Hospitalization, Other)
  Sender: FDA-Public Use
  Company Number: 2005-01933

PATIENT
  Age: 28 Year
  Sex: Male
  Weight: 69.6 kg

DRUGS (3)
  1. VELCADE [Suspect]
     Indication: NON-SMALL CELL LUNG CANCER
     Dosage: 1.00 MG/M2, IV BOLUS
     Route: 040
  2. GEMCITABINE [Suspect]
     Indication: NON-SMALL CELL LUNG CANCER
     Dosage: 1000.00 MG/M2, INTRAVENOUS
     Route: 042
     Dates: start: 20040917, end: 20041029
  3. CARBOPLATIN [Suspect]
     Indication: NON-SMALL CELL LUNG CANCER
     Dosage: 5.00 INTRAVENOUS
     Route: 042
     Dates: start: 20040917, end: 20041029

REACTIONS (11)
  - ABDOMINAL PAIN UPPER [None]
  - CARDIAC ARREST [None]
  - CARDIOVASCULAR DISORDER [None]
  - CONFUSIONAL STATE [None]
  - DILATATION VENTRICULAR [None]
  - DYSPNOEA [None]
  - EJECTION FRACTION DECREASED [None]
  - OEDEMA [None]
  - PAIN [None]
  - RESTRICTIVE CARDIOMYOPATHY [None]
  - RIGHT VENTRICLE OUTFLOW TRACT OBSTRUCTION [None]
